FAERS Safety Report 5308670-0 (Version None)
Quarter: 2007Q2

REPORT INFORMATION
  Report Type: 
  Country: None (occurrence: None)
  Receive Date: 20070426
  Receipt Date: 20070424
  Transmission Date: 20071010
  Serious: Yes (Other)
  Sender: FDA-Public Use
  Company Number: US-GLAXOSMITHKLINE-A0623110A

PATIENT
  Sex: Female
  Weight: 84.1 kg

DRUGS (1)
  1. ADVAIR DISKUS 100/50 [Suspect]
     Indication: ASTHMA
     Route: 055
     Dates: start: 20040401

REACTIONS (5)
  - ANXIETY [None]
  - ASTHMA [None]
  - DYSPHONIA [None]
  - DYSPNOEA [None]
  - RESPIRATORY MONILIASIS [None]
